FAERS Safety Report 5222413-0 (Version None)
Quarter: 2007Q1

REPORT INFORMATION
  Report Type: 
  Country: None (occurrence: None)
  Receive Date: 20070129
  Receipt Date: 20060713
  Transmission Date: 20070707
  Serious: Yes (Death)
  Sender: FDA-Public Use
  Company Number: US-BRISTOL-MYERS SQUIBB COMPANY-13501416

PATIENT
  Age: 65 Year
  Sex: Male
  Weight: 95 kg

DRUGS (15)
  1. GLUCOPHAGE [Suspect]
     Indication: DIABETES MELLITUS
     Route: 048
  2. NIASPAN [Suspect]
     Indication: HIGH DENSITY LIPOPROTEIN DECREASED
     Route: 048
     Dates: start: 20060611, end: 20060611
  3. WELLBUTRIN [Suspect]
     Indication: DEPRESSION
     Route: 048
  4. EFFEXOR [Suspect]
     Indication: DEPRESSION
     Route: 048
  5. LORAZEPAM [Suspect]
     Indication: DEPRESSION
     Route: 048
  6. TRAZODONE HCL [Suspect]
     Indication: DEPRESSION
     Route: 048
  7. TENORMIN [Suspect]
     Indication: TACHYARRHYTHMIA
     Route: 048
  8. LANOXIN [Suspect]
     Indication: TACHYARRHYTHMIA
     Route: 048
  9. GLUCOTROL XL [Suspect]
     Indication: DIABETES MELLITUS
     Route: 048
  10. ACTOS [Suspect]
     Indication: DIABETES MELLITUS
     Route: 048
  11. TRICOR [Suspect]
     Indication: DYSLIPIDAEMIA
     Route: 048
  12. LANTUS [Suspect]
     Indication: DIABETES MELLITUS
     Route: 058
  13. LIPITOR [Suspect]
  14. MULTI-VITAMINS [Suspect]
  15. RISPERDAL [Suspect]
     Route: 048

REACTIONS (4)
  - DRUG INTERACTION [None]
  - FLUSHING [None]
  - MEDICATION ERROR [None]
  - MYOCARDIAL INFARCTION [None]
